FAERS Safety Report 8900760 (Version 3)
Quarter: 2013Q1

REPORT INFORMATION
  Report Type: Spontaneous
  Country: US (occurrence: US)
  Receive Date: 20121109
  Receipt Date: 20130131
  Transmission Date: 20140127
  Serious: Yes (Other)
  Sender: FDA-Public Use
  Company Number: US-PFIZER INC-2012276997

PATIENT
  Age: 62 Year
  Sex: Female
  Weight: 72.56 kg

DRUGS (5)
  1. TOVIAZ [Suspect]
     Indication: HYPERTONIC BLADDER
     Dosage: 4 MG, 1X/DAY
     Route: 048
     Dates: start: 201205, end: 2012
  2. DEPAKOTE [Concomitant]
     Dosage: UNK
  3. WELLBUTRIN [Concomitant]
     Dosage: UNK
  4. TRAZODONE [Concomitant]
     Dosage: UNK
  5. VALIUM [Concomitant]
     Dosage: UNK

REACTIONS (5)
  - Thrombocytopenia [Recovered/Resolved]
  - Red blood cell count decreased [Unknown]
  - Macrocytosis [Unknown]
  - Vitamin B12 deficiency [Unknown]
  - Urinary incontinence [Unknown]
